FAERS Safety Report 12805956 (Version 1)
Quarter: 2016Q4

REPORT INFORMATION
  Report Type: Spontaneous
  Country: US (occurrence: US)
  Receive Date: 20161004
  Receipt Date: 20161004
  Transmission Date: 20170207
  Serious: Yes (Other)
  Sender: FDA-Public Use
  Company Number: US-PFIZER INC-2016460544

PATIENT
  Age: 29 Year
  Sex: Female
  Weight: 53 kg

DRUGS (3)
  1. DEPO-PROVERA [Suspect]
     Active Substance: MEDROXYPROGESTERONE ACETATE
     Indication: CONTRACEPTION
     Dosage: 104 MG, CYCLIC (EVERY 12-14 WEEKS)
     Route: 058
     Dates: start: 20151103
  2. DEPO-PROVERA [Suspect]
     Active Substance: MEDROXYPROGESTERONE ACETATE
     Dosage: 104 MG, CYCLIC (EVERY 12-14 WEEKS)
     Route: 058
     Dates: start: 20160712
  3. DEPO-PROVERA [Suspect]
     Active Substance: MEDROXYPROGESTERONE ACETATE
     Dosage: 104 MG, CYCLIC (EVERY 12-14 WEEKS)
     Route: 058
     Dates: start: 20160413

REACTIONS (2)
  - Inappropriate schedule of drug administration [Unknown]
  - Injection site reaction [Not Recovered/Not Resolved]
